FAERS Safety Report 6014260-7 (Version None)
Quarter: 2008Q4

REPORT INFORMATION
  Report Type: 
  Country: None (occurrence: None)
  Receive Date: 20081219
  Receipt Date: 20080606
  Transmission Date: 20090506
  Serious: No
  Sender: FDA-Public Use
  Company Number: A0714742A

PATIENT
  Age: 63 Year
  Sex: Male
  Weight: 89.1 kg

DRUGS (2)
  1. AVODART [Suspect]
     Indication: PROSTATE CANCER
     Dates: start: 20070501
  2. CASODEX [Suspect]
     Indication: DRUG USE FOR UNKNOWN INDICATION
     Route: 065

REACTIONS (3)
  - GYNAECOMASTIA [None]
  - NIPPLE PAIN [None]
  - SWELLING [None]
